FAERS Safety Report 10155689 (Version 1)
Quarter: 2014Q2

REPORT INFORMATION
  Report Type: Spontaneous
  Country: FR (occurrence: FR)
  Receive Date: 20140506
  Receipt Date: 20140506
  Transmission Date: 20141212
  Serious: Yes (Hospitalization)
  Sender: FDA-Public Use
  Company Number: PHHY2014FR053052

PATIENT
  Age: 54 Year
  Sex: Male

DRUGS (5)
  1. TEGRETOL [Suspect]
     Indication: EPILEPSY
     Dosage: 4 DF, DAILY
     Route: 048
  2. ZECLAR [Interacting]
     Indication: BRONCHITIS
     Dosage: UNK UKN, UNK
     Route: 048
     Dates: start: 20140311, end: 20140316
  3. KEPPRA [Concomitant]
     Dosage: 3 DF, DAILY
     Route: 048
  4. EPITOMAX [Concomitant]
     Dosage: 2 DF, DAILY
     Route: 048
  5. GARDENAL//PHENOBARBITAL [Concomitant]
     Dosage: UNK UKN, UNK

REACTIONS (4)
  - Cerebellar syndrome [Recovered/Resolved]
  - Gait disturbance [Recovered/Resolved]
  - Balance disorder [Recovered/Resolved]
  - Drug interaction [Recovered/Resolved]
